FAERS Safety Report 4884951-X (Version None)
Quarter: 2006Q1

REPORT INFORMATION
  Report Type: 
  Country: None (occurrence: None)
  Receive Date: 20060117
  Receipt Date: 20060104
  Transmission Date: 20060701
  Serious: Yes (Other)
  Sender: FDA-Public Use
  Company Number: 2006004332

PATIENT
  Sex: Male
  Weight: 104.3273 kg

DRUGS (8)
  1. VIAGRA [Suspect]
     Indication: ERECTILE DYSFUNCTION
     Dosage: 25MG (25MG, AS NECESSARY),
  2. GARLIC [Concomitant]
  3. KELP [Concomitant]
  4. LECITHIN [Concomitant]
  5. VITAMIN B6 [Concomitant]
  6. NIACIN [Concomitant]
  7. GOLD SEAL ANTISEPTIC POWDER [Concomitant]
  8. ECHINACEA [Concomitant]

REACTIONS (6)
  - BLOOD PRESSURE DECREASED [None]
  - FLUSHING [None]
  - OBSTRUCTION [None]
  - STENT PLACEMENT [None]
  - THERAPEUTIC RESPONSE DELAYED [None]
  - VISION BLURRED [None]
